FAERS Safety Report 11202229 (Version 1)
Quarter: 2015Q2

REPORT INFORMATION
  Report Type: Spontaneous
  Country: HR (occurrence: HR)
  Receive Date: 20150619
  Receipt Date: 20150619
  Transmission Date: 20150821
  Serious: Yes (Death)
  Sender: FDA-Public Use
  Company Number: HR-ASTRAZENECA-2015SE59759

PATIENT
  Age: 53 Year
  Sex: Male

DRUGS (3)
  1. NITRAZEPAM [Interacting]
     Active Substance: NITRAZEPAM
     Indication: POST-TRAUMATIC STRESS DISORDER
     Route: 065
  2. QUETIAPINE [Suspect]
     Active Substance: QUETIAPINE
     Indication: POST-TRAUMATIC STRESS DISORDER
     Route: 048
  3. ALCOHOL. [Interacting]
     Active Substance: ALCOHOL
     Route: 065

REACTIONS (10)
  - Respiratory acidosis [Fatal]
  - Renal failure [Fatal]
  - Completed suicide [Fatal]
  - Product use issue [None]
  - Hyperglycaemia [Fatal]
  - Coma [Fatal]
  - Pyrexia [Fatal]
  - Drug interaction [Fatal]
  - Intentional overdose [Fatal]
  - Hypotonia [Fatal]
